FAERS Safety Report 6201111-0 (Version None)
Quarter: 2009Q2

REPORT INFORMATION
  Report Type: 
  Country: None (occurrence: None)
  Receive Date: 20090526
  Receipt Date: 20090514
  Transmission Date: 20091009
  Serious: Yes (Other)
  Sender: FDA-Public Use
  Company Number: ES-BAYER-200920762GPV

PATIENT
  Age: 86 Year
  Sex: Male
  Weight: 62 kg

DRUGS (1)
  1. ACTIRA [Suspect]
     Indication: BRONCHITIS
     Dosage: TOTAL DAILY DOSE: 400 MG  UNIT DOSE: 400 MG
     Route: 048
     Dates: start: 20090331, end: 20090402

REACTIONS (2)
  - DELIRIUM [None]
  - HALLUCINATION, VISUAL [None]
